FAERS Safety Report 25939394 (Version 2)
Quarter: 2025Q4

REPORT INFORMATION
  Report Type: Report from Study
  Country: GB (occurrence: GB)
  Receive Date: 20251020
  Receipt Date: 20251128
  Transmission Date: 20260118
  Serious: Yes (Hospitalization)
  Sender: ABBVIE
  Company Number: GB-ABBVIE-6509995

PATIENT
  Sex: Female

DRUGS (4)
  1. SKYRIZI [Suspect]
     Active Substance: RISANKIZUMAB-RZAA
     Indication: Psoriasis
     Dosage: STRENGTH:150MG/1ML, FOA: SOLUTION FOR INJECTION IN PRE-FILLED PEN?WEEK  ZERO
     Route: 058
     Dates: start: 20240905, end: 20240905
  2. SKYRIZI [Suspect]
     Active Substance: RISANKIZUMAB-RZAA
     Dosage: STRENGTH:150MG/1ML, FOA: SOLUTION FOR INJECTION IN PRE-FILLED PEN?WEEK 4
     Route: 058
     Dates: start: 2024, end: 2024
  3. SKYRIZI [Suspect]
     Active Substance: RISANKIZUMAB-RZAA
     Dosage: STRENGTH-150MG
     Route: 058
     Dates: start: 2024
  4. SKYRIZI [Suspect]
     Active Substance: RISANKIZUMAB-RZAA
     Dosage: STRENGTH-150MG
     Route: 058
     Dates: start: 20251120

REACTIONS (2)
  - Cerebrovascular accident [Unknown]
  - Skin disorder [Unknown]
